FAERS Safety Report 10265987 (Version 1)
Quarter: 2014Q2

REPORT INFORMATION
  Report Type: Spontaneous
  Country: DK (occurrence: DK)
  Receive Date: 20140627
  Receipt Date: 20140627
  Transmission Date: 20141212
  Serious: Yes (Death)
  Sender: FDA-Public Use
  Company Number: DK-PFIZER INC-2014173829

PATIENT
  Age: 62 Year
  Sex: Female

DRUGS (4)
  1. FLUCONAZOLE [Suspect]
     Dosage: 200 MG, DAILY
     Route: 048
  2. FLUCONAZOLE [Suspect]
     Dosage: 200 MG, DAILY
     Route: 048
  3. CASPOFUNGIN ACETATE [Suspect]
     Indication: ANTIFUNGAL PROPHYLAXIS
     Dosage: LOADING DOSE: 70 MG
  4. CASPOFUNGIN ACETATE [Suspect]
     Dosage: 50 MG, DAILY

REACTIONS (1)
  - Drug ineffective [Fatal]
